FAERS Safety Report 6138099-7 (Version None)
Quarter: 2009Q1

REPORT INFORMATION
  Report Type: 
  Country: None (occurrence: None)
  Receive Date: 20090327
  Receipt Date: 20090318
  Transmission Date: 20090719
  Serious: Yes (Life-Threatening)
  Sender: FDA-Public Use
  Company Number: JHP200900081

PATIENT
  Age: 59 Year
  Sex: Female

DRUGS (7)
  1. ADRENALIN IN OIL INJ [Suspect]
     Indication: HYPOTENSION
     Dosage: 5 UG/MIN, RAPIDLY ESCALATING TO 20 UG/MIN, INTRAVENOUS
     Route: 042
  2. QUETIAPINE FUMARATE [Suspect]
     Indication: INTENTIONAL OVERDOSE
     Dosage: 20 G, ORAL
     Route: 048
  3. SODIUM CHLORIDE [Concomitant]
  4. MIDAZOLAM HCL [Concomitant]
  5. FENTANYL-100 [Concomitant]
  6. SUXAMETHONIUM (SUXAMETHONIUM) [Concomitant]
  7. MORPHINE [Concomitant]

REACTIONS (4)
  - HYPOTENSION [None]
  - OVERDOSE [None]
  - POTENTIATING DRUG INTERACTION [None]
  - SINUS TACHYCARDIA [None]
